FAERS Safety Report 23960215 (Version 4)
Quarter: 2024Q3

REPORT INFORMATION
  Report Type: Report from Study
  Country: DE (occurrence: DE)
  Receive Date: 20240611
  Receipt Date: 20240802
  Transmission Date: 20241017
  Serious: No
  Sender: JOHNSON AND JOHNSON
  Company Number: DE-JNJFOC-20240611372

PATIENT
  Age: 57 Year
  Sex: Female

DRUGS (2)
  1. SPRAVATO [Suspect]
     Active Substance: ESKETAMINE
     Indication: Depression
     Dosage: 56 MG (2 DEVICES)?18/APR/2024, 23/APR/2024, 25/APR/2024, 30/APR/2024, 02/MAY/2024,07/MAY/2024
     Dates: start: 20240416, end: 20240510
  2. SPRAVATO [Suspect]
     Active Substance: ESKETAMINE
     Dosage: 84 MG (3 DEVICES)?21/MAY/2024, 06/JUN/2024, 11/JUN/2024, 19/JUN/2024, 26/JUN/2024, 03/JUL/2024, 10/J
     Dates: start: 20240514, end: 20240724

REACTIONS (3)
  - Dizziness [Recovered/Resolved]
  - Feeling drunk [Recovered/Resolved]
  - Parosmia [Recovered/Resolved]

NARRATIVE: CASE EVENT DATE: 20240416
